FAERS Safety Report 4657880-4 (Version None)
Quarter: 2005Q2

REPORT INFORMATION
  Report Type: 
  Country: None (occurrence: None)
  Receive Date: 20050510
  Receipt Date: 20050506
  Transmission Date: 20051028
  Serious: Yes (Other)
  Sender: FDA-Public Use
  Company Number: PHBS2005NZ06428

PATIENT
  Age: 17 Year
  Sex: Male

DRUGS (2)
  1. CLONAZEPAM [Concomitant]
     Dosage: 0.5 MG, QHS
  2. CLOZARIL [Suspect]
     Dosage: 0.5 MG PRN
     Route: 048
     Dates: start: 20050501

REACTIONS (4)
  - AORTIC VALVE INCOMPETENCE [None]
  - CARDIAC FAILURE CONGESTIVE [None]
  - DILATATION VENTRICULAR [None]
  - VENTRICULAR DYSFUNCTION [None]
